FAERS Safety Report 5495448-0 (Version None)
Quarter: 2007Q4

REPORT INFORMATION
  Report Type: 
  Country: None (occurrence: None)
  Receive Date: 20071023
  Receipt Date: 20071010
  Transmission Date: 20080405
  Serious: Yes (Other)
  Sender: FDA-Public Use
  Company Number: 238684K07USA

PATIENT
  Age: 41 Year
  Sex: Female

DRUGS (4)
  1. REBIF [Suspect]
     Indication: MULTIPLE SCLEROSIS
     Dosage: 44 MCG, 3 IN 1 WEEKS, SUBCUTANEOUS
     Route: 058
     Dates: start: 20070709
  2. LEVOTHYROXINE (LEVOTHYROXINE /00068001/) [Concomitant]
  3. ACCUPRIL [Concomitant]
  4. AMLODIPINE [Concomitant]

REACTIONS (5)
  - ANAEMIA [None]
  - CONDITION AGGRAVATED [None]
  - MENORRHAGIA [None]
  - OVARIAN CYST [None]
  - UTERINE LEIOMYOMA [None]
